FAERS Safety Report 5628204-0 (Version None)
Quarter: 2008Q1

REPORT INFORMATION
  Report Type: 
  Country: None (occurrence: None)
  Receive Date: 20080215
  Receipt Date: 20080207
  Transmission Date: 20080703
  Serious: Yes (Other)
  Sender: FDA-Public Use
  Company Number: PT-JNJFOC-20080201990

PATIENT
  Sex: Female
  Weight: 66 kg

DRUGS (5)
  1. CEGRIPE [Suspect]
     Indication: PYREXIA
     Route: 048
     Dates: start: 20040101
  2. PARACETAMOL [Suspect]
     Route: 048
     Dates: start: 20040101
  3. PARACETAMOL [Suspect]
     Indication: PYREXIA
     Route: 048
     Dates: start: 20040101
  4. MAGNESIUM PIDOLATE [Concomitant]
     Indication: MAGNESIUM DEFICIENCY
     Dates: start: 20071226
  5. RALOXIFENE HYDROCHLORIDE [Concomitant]
     Indication: OSTEOPOROSIS PROPHYLAXIS
     Dates: start: 20030101

REACTIONS (1)
  - EPISTAXIS [None]
